FAERS Safety Report 16298333 (Version 1)
Quarter: 2019Q2

REPORT INFORMATION
  Report Type: Other
  Country: HU (occurrence: HU)
  Receive Date: 20190510
  Receipt Date: 20190510
  Transmission Date: 20190711
  Serious: Yes (Other)
  Sender: FDA-Public Use
  Company Number: HU-APOTEX-2019AP013468

PATIENT
  Age: 54 Year
  Sex: Male

DRUGS (1)
  1. PERINDOPRIL [Suspect]
     Active Substance: PERINDOPRIL
     Indication: HYPERTENSION
     Dosage: 8 MG, QD, 8 MILLIGRAM DAILY
     Route: 065

REACTIONS (4)
  - Blood pressure increased [Recovered/Resolved]
  - Product use issue [Not Recovered/Not Resolved]
  - Atrial fibrillation [Recovering/Resolving]
  - Drug ineffective [Unknown]

NARRATIVE: CASE EVENT DATE: 2017
